FAERS Safety Report 20011752 (Version 2)
Quarter: 2021Q4

REPORT INFORMATION
  Report Type: Report from Study
  Country: US (occurrence: US)
  Receive Date: 20211029
  Receipt Date: 20211218
  Transmission Date: 20220304
  Serious: Yes (Other)
  Sender: FDA-Public Use
  Company Number: US-NOVARTISPH-NVSC2021US245934

PATIENT
  Sex: Male
  Weight: 65.77 kg

DRUGS (1)
  1. ENTRESTO [Suspect]
     Active Substance: SACUBITRIL\VALSARTAN
     Indication: Cardiac failure
     Dosage: 1 DF, BID
     Route: 048
     Dates: start: 202109

REACTIONS (6)
  - Epilepsy [Unknown]
  - Musculoskeletal chest pain [Unknown]
  - Depressed mood [Unknown]
  - Mobility decreased [Unknown]
  - Dizziness [Unknown]
  - Gait disturbance [Unknown]
